FAERS Safety Report 7388103-3 (Version None)
Quarter: 2011Q2

REPORT INFORMATION
  Report Type: 
  Country: None (occurrence: None)
  Receive Date: 20110401
  Receipt Date: 20110319
  Transmission Date: 20111010
  Serious: Yes (Other)
  Sender: FDA-Public Use
  Company Number: US-ELI_LILLY_AND_COMPANY-US201006000369

PATIENT
  Age: 65 Year
  Sex: Female

DRUGS (1)
  1. FORTEO [Suspect]
     Indication: OSTEOPOROSIS
     Dosage: UNK, UNKNOWN
     Route: 065
     Dates: start: 20090701

REACTIONS (6)
  - NERVE COMPRESSION [None]
  - WRIST FRACTURE [None]
  - FALL [None]
  - GAIT DISTURBANCE [None]
  - INJECTION SITE PAIN [None]
  - PAIN IN EXTREMITY [None]
